FAERS Safety Report 8900025 (Version 1)
Quarter: 2012Q4

REPORT INFORMATION
  Report Type: 
  Country: US (occurrence: US)
  Receive Date: 20121108
  Receipt Date: 20121108
  Transmission Date: 20130627
  Serious: Yes (Disabling)
  Sender: FDA-Public Use
  Company Number: US-009507513-1211USA003012

PATIENT

DRUGS (1)
  1. PROPECIA [Suspect]
     Indication: ANDROGENETIC ALOPECIA
     Dosage: 1 mg
     Route: 048
     Dates: start: 2009

REACTIONS (3)
  - Emotional distress [Not Recovered/Not Resolved]
  - Sexual dysfunction [Not Recovered/Not Resolved]
  - Anxiety [Not Recovered/Not Resolved]
